FAERS Safety Report 6166507-4 (Version None)
Quarter: 2009Q2

REPORT INFORMATION
  Report Type: 
  Country: None (occurrence: None)
  Receive Date: 20090422
  Receipt Date: 20090422
  Transmission Date: 20091009
  Serious: Yes (Other)
  Sender: FDA-Public Use
  Company Number: None

PATIENT
  Age: 37 Year
  Sex: Female
  Weight: 60.3284 kg

DRUGS (3)
  1. FENTANYL-12 [Suspect]
     Indication: NERVE INJURY
     Dosage: 12 MCG 1 PER 3 DAYS TRANSDERMAL
     Route: 062
     Dates: start: 20080601, end: 20090421
  2. FENTANYL-12 [Suspect]
     Indication: OESOPHAGEAL RUPTURE
     Dosage: 12 MCG 1 PER 3 DAYS TRANSDERMAL
     Route: 062
     Dates: start: 20080601, end: 20090421
  3. FENTANYL-12 [Suspect]
     Indication: PAIN
     Dosage: 12 MCG 1 PER 3 DAYS TRANSDERMAL
     Route: 062
     Dates: start: 20080601, end: 20090421

REACTIONS (2)
  - DEVICE FAILURE [None]
  - DRUG EFFECT DECREASED [None]
